FAERS Safety Report 25339826 (Version 1)
Quarter: 2025Q2

REPORT INFORMATION
  Report Type: Spontaneous
  Country: GB (occurrence: GB)
  Receive Date: 20250521
  Receipt Date: 20250521
  Transmission Date: 20250717
  Serious: Yes (Hospitalization)
  Sender: DR REDDYS
  Company Number: None

PATIENT
  Age: 80 Year
  Sex: Male
  Weight: 84 kg

DRUGS (19)
  1. AZACITIDINE [Suspect]
     Active Substance: AZACITIDINE
     Indication: Myelodysplastic syndrome
     Route: 058
     Dates: start: 20210628
  2. VENETOCLAX [Suspect]
     Active Substance: VENETOCLAX
     Indication: Myelodysplastic syndrome
     Route: 048
     Dates: start: 20210628, end: 20210806
  3. VENETOCLAX [Suspect]
     Active Substance: VENETOCLAX
     Dosage: DAYS 1 - 14 OF EACH 28-DAY CYCLE
     Route: 048
     Dates: start: 20210906
  4. ALLOPURINOL [Concomitant]
     Active Substance: ALLOPURINOL
     Indication: Prophylaxis
     Route: 048
     Dates: start: 20210628, end: 20210725
  5. CARBOMER [Concomitant]
     Active Substance: CARBOMER
     Indication: Dry eye
     Route: 047
     Dates: start: 20210421
  6. CIPROFLOXACIN [Concomitant]
     Active Substance: CIPROFLOXACIN
     Indication: Infection prophylaxis
     Dosage: 1000 MG
     Route: 048
     Dates: start: 20210628
  7. DOCUSATE [Concomitant]
     Active Substance: DOCUSATE
     Indication: Constipation
     Route: 048
     Dates: start: 20210728
  8. DOMPERIDONE [Concomitant]
     Active Substance: DOMPERIDONE
     Indication: Nausea
     Route: 048
     Dates: start: 20210628
  9. ISOPROPYL MYRISTATE\MINERAL OIL [Concomitant]
     Active Substance: ISOPROPYL MYRISTATE\MINERAL OIL
     Indication: Dry skin
     Route: 061
     Dates: start: 20171101
  10. FUCIDIN [Concomitant]
     Active Substance: FUSIDATE SODIUM
     Indication: Scrotal infection
     Route: 061
     Dates: start: 20210725
  11. LANSOPRAZOLE [Concomitant]
     Active Substance: LANSOPRAZOLE
     Indication: Abdominal discomfort
     Route: 048
     Dates: start: 20170223
  12. LOSARTAN POTASSIUM [Concomitant]
     Active Substance: LOSARTAN POTASSIUM
     Indication: Hypertension
     Route: 048
     Dates: start: 20151126
  13. ACETAMINOPHEN [Concomitant]
     Active Substance: ACETAMINOPHEN
     Indication: Pain
     Route: 048
     Dates: start: 20210609
  14. ACETAMINOPHEN [Concomitant]
     Active Substance: ACETAMINOPHEN
     Indication: Febrile neutropenia
     Route: 048
     Dates: start: 20151126
  15. ACETAMINOPHEN [Concomitant]
     Active Substance: ACETAMINOPHEN
     Route: 048
     Dates: start: 20210821
  16. SIMVASTATIN [Concomitant]
     Active Substance: SIMVASTATIN
     Indication: Blood cholesterol decreased
     Dosage: 20 MILLIGRAM, NIGHTLY
     Route: 048
     Dates: start: 20151126, end: 20210626
  17. SIMVASTATIN [Concomitant]
     Active Substance: SIMVASTATIN
     Dosage: 40 MILLIGRAM
     Route: 048
     Dates: start: 20210713
  18. SODIUM CHLORIDE [Concomitant]
     Active Substance: SODIUM CHLORIDE
     Indication: Prophylaxis
     Route: 048
     Dates: start: 20210628
  19. TAMSULOSIN [Concomitant]
     Active Substance: TAMSULOSIN
     Indication: Benign prostatic hyperplasia
     Route: 048
     Dates: start: 20190122

REACTIONS (4)
  - Epistaxis [Recovered/Resolved]
  - Platelet count decreased [Recovered/Resolved]
  - Tinea infection [Recovered/Resolved]
  - Rash [Not Recovered/Not Resolved]

NARRATIVE: CASE EVENT DATE: 20210807
